FAERS Safety Report 20768118 (Version 1)
Quarter: 2022Q2

REPORT INFORMATION
  Report Type: Report from Study
  Country: DE (occurrence: DE)
  Receive Date: 20220429
  Receipt Date: 20220429
  Transmission Date: 20220721
  Serious: Yes (Hospitalization)
  Sender: FDA-Public Use
  Company Number: DE-009507513-2204DEU007214

PATIENT
  Age: 67 Year
  Sex: Female
  Weight: 61 kg

DRUGS (8)
  1. PIOGLITAZONE [Suspect]
     Active Substance: PIOGLITAZONE
     Indication: Metastatic malignant melanoma
     Dosage: 60 MILLIGRAM
     Route: 048
     Dates: start: 20200103, end: 20200320
  2. PIOGLITAZONE [Suspect]
     Active Substance: PIOGLITAZONE
     Dosage: UNK
     Route: 065
  3. TEMSIROLIMUS [Suspect]
     Active Substance: TEMSIROLIMUS
     Indication: Metastatic malignant melanoma
     Dosage: 25 MILLIGRAM
     Route: 042
     Dates: start: 20200103, end: 20200320
  4. ETORICOXIB [Suspect]
     Active Substance: ETORICOXIB
     Indication: Metastatic malignant melanoma
     Dosage: 60 MILLIGRAM
     Route: 065
     Dates: start: 20200103, end: 20200902
  5. ETORICOXIB [Suspect]
     Active Substance: ETORICOXIB
     Dosage: UNK
     Route: 065
  6. TROFOSFAMIDE [Suspect]
     Active Substance: TROFOSFAMIDE
     Indication: Metastatic malignant melanoma
     Dosage: 150 MILLIGRAM
     Route: 048
     Dates: start: 20200103, end: 20200902
  7. TROFOSFAMIDE [Suspect]
     Active Substance: TROFOSFAMIDE
     Dosage: UNK
     Route: 065
  8. PEMBROLIZUMAB [Suspect]
     Active Substance: PEMBROLIZUMAB
     Indication: Product used for unknown indication
     Dosage: 200 MILLIGRAM, Q3WEEKS
     Route: 042
     Dates: start: 20200921, end: 20200921

REACTIONS (1)
  - Acute kidney injury [Unknown]

NARRATIVE: CASE EVENT DATE: 20200928
